FAERS Safety Report 7127017-0 (Version None)
Quarter: 2010Q4

REPORT INFORMATION
  Report Type: 
  Country: None (occurrence: None)
  Receive Date: 20101129
  Receipt Date: 20100104
  Transmission Date: 20110411
  Serious: No
  Sender: FDA-Public Use
  Company Number: US-PFIZER INC-2010002745

PATIENT
  Sex: Male
  Weight: 77.1 kg

DRUGS (2)
  1. VIAGRA [Suspect]
     Indication: ERECTILE DYSFUNCTION
     Dosage: 100 MG, AS NEEDED
     Route: 048
  2. NEXIUM [Concomitant]
     Dosage: 40 MG, UNK

REACTIONS (2)
  - DRUG EFFECT DECREASED [None]
  - NASAL CONGESTION [None]
